FAERS Safety Report 12583408 (Version 1)
Quarter: 2016Q3

REPORT INFORMATION
  Report Type: Spontaneous
  Country: CN (occurrence: CN)
  Receive Date: 20160722
  Receipt Date: 20160722
  Transmission Date: 20161109
  Serious: Yes (Other)
  Sender: FDA-Public Use
  Company Number: CN-PFIZER INC-2016344165

PATIENT
  Age: 16 Year
  Sex: Male

DRUGS (3)
  1. DACARBAZINE. [Suspect]
     Active Substance: DACARBAZINE
     Indication: DESMOID TUMOUR
     Dosage: 150 MG/M2, CYCLIC (EVERY 28 DAYS, RECEIVED 150 MG/M2 DAILY THROUGHOUT 4 DAYS PER CYCLE)
     Route: 041
     Dates: start: 20140524
  2. MELOXICAM. [Suspect]
     Active Substance: MELOXICAM
     Indication: DESMOID TUMOUR
     Dosage: 10 MG/M2, UNK
  3. DOXORUBICIN HCL [Suspect]
     Active Substance: DOXORUBICIN HYDROCHLORIDE
     Indication: DESMOID TUMOUR
     Dosage: 20 MG/M2, CYCLIC (EVERY 28 DAYS, RECEIVED 20 MG/M2 DAILY THROUGHOUT 4 DAYS PER CYCLE)
     Route: 041
     Dates: start: 20140524

REACTIONS (1)
  - Intestinal perforation [Recovered/Resolved]
